FAERS Safety Report 24391969 (Version 1)
Quarter: 2024Q4

REPORT INFORMATION
  Report Type: Spontaneous
  Country: VN (occurrence: VN)
  Receive Date: 20241003
  Receipt Date: 20241003
  Transmission Date: 20250115
  Serious: Yes (Other)
  Sender: NOVARTIS
  Company Number: VN-002147023-NVSC2024VN192490

PATIENT
  Age: 35 Year
  Sex: Male

DRUGS (1)
  1. CERITINIB [Suspect]
     Active Substance: CERITINIB
     Indication: Bronchial carcinoma
     Dosage: 450 MG, QD
     Route: 065

REACTIONS (13)
  - Metastases to central nervous system [Recovering/Resolving]
  - Malignant neoplasm progression [Unknown]
  - Bronchial carcinoma [Unknown]
  - Lymphadenopathy mediastinal [Unknown]
  - Pleural effusion [Recovered/Resolved]
  - Hemiplegia [Unknown]
  - Hemiparesis [Unknown]
  - Seizure [Unknown]
  - Dysphagia [Unknown]
  - Chest pain [Unknown]
  - Cough [Unknown]
  - Hypophagia [Unknown]
  - Therapeutic product effect incomplete [Unknown]

NARRATIVE: CASE EVENT DATE: 20191201
